FAERS Safety Report 20787424 (Version 2)
Quarter: 2022Q3

REPORT INFORMATION
  Report Type: Report from Study
  Country: US (occurrence: US)
  Receive Date: 20220505
  Receipt Date: 20220708
  Transmission Date: 20221026
  Serious: Yes (Hospitalization, Other)
  Sender: FDA-Public Use
  Company Number: US-GILEAD-2022-0579748

PATIENT
  Sex: Female

DRUGS (25)
  1. AZTREONAM LYSINE [Suspect]
     Active Substance: AZTREONAM LYSINE
     Indication: Cystic fibrosis
     Dosage: 75 MG, TID FOR 28 DAYS ON AND 28 DAYS OFF
     Route: 055
  2. AZTREONAM LYSINE [Suspect]
     Active Substance: AZTREONAM LYSINE
     Indication: Pseudomonas infection
  3. VISTARIL [Concomitant]
     Active Substance: HYDROXYZINE PAMOATE
  4. HUMATE-P [Concomitant]
     Active Substance: HUMAN COAGULATION FACTOR VIII/VON WILLEBRAND FACTOR COMPLEX
  5. TRANEXAMIC ACID [Concomitant]
     Active Substance: TRANEXAMIC ACID
  6. ZENPEP [Concomitant]
     Active Substance: PANCRELIPASE AMYLASE\PANCRELIPASE LIPASE\PANCRELIPASE PROTEASE
  7. AMBIEN [Concomitant]
     Active Substance: ZOLPIDEM TARTRATE
  8. LITHIUM CARBONATE [Concomitant]
     Active Substance: LITHIUM CARBONATE
  9. RITALIN [METHYLPHENIDATE HYDROCHLORIDE] [Concomitant]
  10. TOBRAMYCIN [Concomitant]
     Active Substance: TOBRAMYCIN
     Dosage: TOBRAMYCIN 300 MG/5ML AMPUL-NEB
  11. ALBUTEROL\IPRATROPIUM [Concomitant]
     Active Substance: ALBUTEROL\IPRATROPIUM
  12. SALINE NASAL MIST [Concomitant]
  13. BIOTIN [Concomitant]
     Active Substance: BIOTIN
  14. CULTURELLE [Concomitant]
     Active Substance: LACTOBACILLUS RHAMNOSUS
  15. PULMOZYME [Concomitant]
     Active Substance: DORNASE ALFA
  16. TYLENOL EXTRA STRENGTH [Concomitant]
     Active Substance: ACETAMINOPHEN
  17. VITAMINS [Concomitant]
     Active Substance: VITAMINS
  18. SODIUM CHLORIDE [Concomitant]
     Active Substance: SODIUM CHLORIDE
  19. VISTARIL [Concomitant]
     Active Substance: HYDROXYZINE PAMOATE
  20. RITALIN [Concomitant]
     Active Substance: METHYLPHENIDATE HYDROCHLORIDE
  21. ALBUTEROL\IPRATROPIUM [Concomitant]
     Active Substance: ALBUTEROL\IPRATROPIUM
  22. SALINE MIST [Concomitant]
     Active Substance: SODIUM CHLORIDE
  23. TYLENOL [Concomitant]
     Active Substance: ACETAMINOPHEN
  24. TRIKAFTA [Concomitant]
     Active Substance: ELEXACAFTOR\IVACAFTOR\TEZACAFTOR
  25. VITAMINS [Concomitant]
     Active Substance: VITAMINS

REACTIONS (4)
  - Pneumonia [Not Recovered/Not Resolved]
  - Haemoptysis [Not Recovered/Not Resolved]
  - Pneumonia fungal [Not Recovered/Not Resolved]
  - Mental disorder [Unknown]
